FAERS Safety Report 22538270 (Version 1)
Quarter: 2023Q2

REPORT INFORMATION
  Report Type: Report from Study
  Country: CA (occurrence: CA)
  Receive Date: 20230609
  Receipt Date: 20230609
  Transmission Date: 20230722
  Serious: Yes (Other)
  Sender: FDA-Public Use
  Company Number: CA-CELLTRION INC.-2023CA011682

PATIENT

DRUGS (1)
  1. TRUXIMA [Suspect]
     Active Substance: RITUXIMAB-ABBS
     Indication: Cold type haemolytic anaemia
     Dosage: 600 MG WEEKLY X 4 DOSES, 375 MG/M2 X BSA, (4X500MG VIALS + 4X100MG VIALS) = 2400MG)

REACTIONS (2)
  - Cold type haemolytic anaemia [Unknown]
  - Off label use [Unknown]
